FAERS Safety Report 18672909 (Version 1)
Quarter: 2020Q4

REPORT INFORMATION
  Report Type: Spontaneous
  Country: ES (occurrence: ES)
  Receive Date: 20201229
  Receipt Date: 20201229
  Transmission Date: 20210114
  Serious: Yes (Hospitalization, Other)
  Sender: FDA-Public Use
  Company Number: ES-TEVA-2020-ES-1863057

PATIENT
  Age: 67 Year
  Sex: Male

DRUGS (10)
  1. OXALIPLATIN. [Suspect]
     Active Substance: OXALIPLATIN
     Dosage: 50ML (27,4MG) DOSE INFUSION (SECOND DOSE)
     Route: 050
     Dates: start: 201906
  2. ACETAMINOPHEN. [Concomitant]
     Active Substance: ACETAMINOPHEN
     Indication: PREMEDICATION
     Route: 048
  3. PREDNISONE. [Concomitant]
     Active Substance: PREDNISONE
     Indication: PREMEDICATION
     Route: 042
  4. OXALIPLATIN. [Suspect]
     Active Substance: OXALIPLATIN
     Indication: COLON CANCER METASTATIC
     Dosage: INFUSION ROUTE, ACTION TAKEN: INITIALLY, THERAPY DISCONTINUED THEN THERAPY COMPLETED
     Route: 050
     Dates: start: 201711, end: 201802
  5. PREDNISONE. [Concomitant]
     Active Substance: PREDNISONE
     Indication: PREMEDICATION
     Route: 065
  6. OXALIPLATIN. [Suspect]
     Active Substance: OXALIPLATIN
     Dosage: TOTAL OXALIPLATIN DOSE WAS REDUCED TO 75% OF TOTAL DOSE WITH FINAL INFUSION VELOCITY OF 60ML/HR (...
     Route: 050
  7. ACETAMINOPHEN. [Concomitant]
     Active Substance: ACETAMINOPHEN
     Indication: PREMEDICATION
     Route: 048
  8. OXALIPLATIN. [Suspect]
     Active Substance: OXALIPLATIN
     Dosage: OXALIPLATIN ADMINISTERED WITH A TARGET DOSE OF 100% (DURING 6 MORE DESENSITISATION)
     Route: 050
  9. SALINE SOLUTION [Concomitant]
     Active Substance: SODIUM CHLORIDE
     Indication: FLUID REPLACEMENT
     Dosage: 4800 ML DAILY;
     Route: 065
  10. OXALIPLATIN. [Suspect]
     Active Substance: OXALIPLATIN
     Dosage: 80ML/HR PROGRESSIVELY INCREASING UP TO 90ML/HR AND FINALLY 100ML/HR. AT 150ML (92.4MG), PREVENTIV...
     Route: 050
     Dates: start: 201907

REACTIONS (2)
  - Cytokine release syndrome [Recovered/Resolved]
  - Type I hypersensitivity [Recovered/Resolved]
